FAERS Safety Report 11952468 (Version 1)
Quarter: 2016Q1

REPORT INFORMATION
  Report Type: Spontaneous
  Country: US (occurrence: US)
  Receive Date: 20160126
  Receipt Date: 20160126
  Transmission Date: 20160526
  Serious: No
  Sender: FDA-Public Use
  Company Number: US-DEXPHARM-20151742

PATIENT
  Age: 62 Year
  Sex: Female
  Weight: 57.6 kg

DRUGS (2)
  1. OMEPRAZOLE DELAYED RELEASE [Suspect]
     Active Substance: OMEPRAZOLE
     Indication: GASTROOESOPHAGEAL REFLUX DISEASE
     Dates: start: 201510, end: 201510
  2. OMEPRAZOLE DELAYED RELEASE [Suspect]
     Active Substance: OMEPRAZOLE
     Indication: GASTROOESOPHAGEAL REFLUX DISEASE
     Dates: start: 201509, end: 201510

REACTIONS (3)
  - Drug ineffective [Unknown]
  - Overdose [Unknown]
  - Throat irritation [Recovering/Resolving]

NARRATIVE: CASE EVENT DATE: 20150922
